FAERS Safety Report 8975026 (Version 2)
Quarter: 2012Q4

REPORT INFORMATION
  Report Type: 
  Country: SE (occurrence: SE)
  Receive Date: 20121219
  Receipt Date: 20121221
  Transmission Date: 20130627
  Serious: No
  Sender: FDA-Public Use
  Company Number: PHHY2012SE116872

PATIENT
  Age: 44 Year
  Sex: Male

DRUGS (1)
  1. GILENYA [Suspect]
     Dosage: 1 DF, UNK
     Route: 048
     Dates: start: 20120530

REACTIONS (2)
  - Palpitations [Recovered/Resolved]
  - Chest discomfort [Recovered/Resolved]
